FAERS Safety Report 18368913 (Version 1)
Quarter: 2020Q4

REPORT INFORMATION
  Report Type: Spontaneous
  Country: GB (occurrence: GB)
  Receive Date: 20201011
  Receipt Date: 20201011
  Transmission Date: 20210114
  Serious: Yes (Hospitalization)
  Sender: FDA-Public Use
  Company Number: GB-PBT-000024

PATIENT
  Age: 14 Year

DRUGS (7)
  1. ENALAPRIL [Concomitant]
     Active Substance: ENALAPRIL
     Indication: NEPHROTIC SYNDROME
     Route: 065
  2. OMEPRAZOLE. [Concomitant]
     Active Substance: OMEPRAZOLE
     Indication: NEPHROTIC SYNDROME
     Route: 065
  3. PHENOXYMETHYLPENICILLIN [Concomitant]
     Active Substance: PENICILLIN V
     Indication: NEPHROTIC SYNDROME
     Route: 065
  4. FERROUS FUMARATE [Concomitant]
     Active Substance: FERROUS FUMARATE
     Indication: NEPHROTIC SYNDROME
     Route: 065
  5. SODIUM CHLORIDE. [Concomitant]
     Active Substance: SODIUM CHLORIDE
     Indication: NEPHROTIC SYNDROME
     Route: 040
  6. TACROLIMUS. [Suspect]
     Active Substance: TACROLIMUS
     Indication: NEPHROTIC SYNDROME
     Route: 065
  7. LEVOTHYROXINE. [Concomitant]
     Active Substance: LEVOTHYROXINE
     Indication: NEPHROTIC SYNDROME
     Route: 065

REACTIONS (3)
  - Drug ineffective for unapproved indication [Unknown]
  - Cryptosporidiosis infection [Unknown]
  - Hepatobiliary infection [Recovered/Resolved]
